FAERS Safety Report 7591457-6 (Version None)
Quarter: 2011Q3

REPORT INFORMATION
  Report Type: 
  Country: None (occurrence: None)
  Receive Date: 20110701
  Receipt Date: 20110701
  Transmission Date: 20111222
  Serious: Yes (Other)
  Sender: FDA-Public Use
  Company Number: None

PATIENT
  Age: 73 Year
  Sex: Male
  Weight: 84.8226 kg

DRUGS (1)
  1. AMOXICILLIN [Suspect]
     Dosage: 1 CAPSULE 3 TIMES DAILY PO
     Route: 048
     Dates: start: 20101203, end: 20101204

REACTIONS (1)
  - HAEMATEMESIS [None]
